FAERS Safety Report 14355815 (Version 2)
Quarter: 2018Q2

REPORT INFORMATION
  Report Type: Spontaneous
  Country: FR (occurrence: FR)
  Receive Date: 20180105
  Receipt Date: 20180412
  Transmission Date: 20180711
  Serious: Yes (Death, Life-Threatening, Hospitalization)
  Sender: FDA-Public Use
  Company Number: FR-MYLANLABS-2018M1000074

PATIENT
  Age: 41 Year
  Sex: Male
  Weight: 66 kg

DRUGS (3)
  1. BLEOMYCINE BELLON [Suspect]
     Active Substance: BLEOMYCIN SULFATE
     Indication: TESTICULAR GERM CELL CANCER METASTATIC
     Dosage: 30 MG, UNK
     Route: 042
  2. ETOPOSIDE TEVA [Suspect]
     Active Substance: ETOPOSIDE
     Indication: TESTICULAR GERM CELL CANCER METASTATIC
     Dosage: 70 MG, UNK
     Route: 042
  3. CISPLATIN MYLAN [Suspect]
     Active Substance: CISPLATIN
     Indication: TESTICULAR GERM CELL CANCER METASTATIC
     Dosage: 34.5 MG, UNK
     Route: 042

REACTIONS (3)
  - Pulmonary fibrosis [Fatal]
  - Lung disorder [Fatal]
  - Acute respiratory distress syndrome [Fatal]

NARRATIVE: CASE EVENT DATE: 20171107
